FAERS Safety Report 17255069 (Version 2)
Quarter: 2020Q1

REPORT INFORMATION
  Report Type: Spontaneous
  Country: AU (occurrence: AU)
  Receive Date: 20200109
  Receipt Date: 20200302
  Transmission Date: 20200409
  Serious: Yes (Other)
  Sender: FDA-Public Use
  Company Number: AU-BEH-2020111487

PATIENT
  Age: 7 Year
  Sex: Male
  Weight: 46 kg

DRUGS (1)
  1. PRIVIGEN [Suspect]
     Active Substance: HUMAN IMMUNOGLOBULIN G
     Indication: KAWASAKI^S DISEASE
     Dosage: 90 GRAM, AT MAX 120ML/HR PER PROTOCOL, TOT
     Route: 042
     Dates: start: 20200105, end: 20200105

REACTIONS (4)
  - Tachycardia [Recovering/Resolving]
  - Tachypnoea [Recovering/Resolving]
  - Pyrexia [Recovering/Resolving]
  - Vital functions abnormal [Recovering/Resolving]

NARRATIVE: CASE EVENT DATE: 20200105
